FAERS Safety Report 5472648-7 (Version None)
Quarter: 2007Q4

REPORT INFORMATION
  Report Type: 
  Country: None (occurrence: None)
  Receive Date: 20071001
  Receipt Date: 20060810
  Transmission Date: 20080405
  Serious: Yes (Other)
  Sender: FDA-Public Use
  Company Number: US-ASTRAZENECA-2006UW16041

PATIENT
  Age: 28 Year
  Sex: Male
  Weight: 80.3 kg

DRUGS (4)
  1. ARIMIDEX [Suspect]
     Indication: BREAST CANCER STAGE IV
     Route: 048
     Dates: start: 20060601
  2. LUPRON [Concomitant]
  3. ZOMETA [Concomitant]
  4. ADVIL LIQUI-GELS [Concomitant]

REACTIONS (5)
  - AMNESIA [None]
  - DISEASE PROGRESSION [None]
  - FATIGUE [None]
  - LIBIDO DECREASED [None]
  - MOOD SWINGS [None]
